FAERS Safety Report 18571129 (Version 1)
Quarter: 2020Q4

REPORT INFORMATION
  Report Type: Spontaneous
  Country: US (occurrence: US)
  Receive Date: 20201202
  Receipt Date: 20201202
  Transmission Date: 20210114
  Serious: Yes (Hospitalization, Other)
  Sender: FDA-Public Use
  Company Number: US-PURDUE-USA-2020-0169881

PATIENT
  Sex: Female

DRUGS (5)
  1. ROXICODONE [Suspect]
     Active Substance: OXYCODONE HYDROCHLORIDE
     Indication: PRODUCT USED FOR UNKNOWN INDICATION
     Dosage: UNK
     Route: 064
  2. METHADONE [Suspect]
     Active Substance: METHADONE HYDROCHLORIDE
     Indication: PRODUCT USED FOR UNKNOWN INDICATION
     Dosage: UNK
     Route: 064
  3. OXYCODONE/ ACETAMINOPHEN TABLETS [Suspect]
     Active Substance: ACETAMINOPHEN\OXYCODONE HYDROCHLORIDE
     Indication: PRODUCT USED FOR UNKNOWN INDICATION
     Dosage: UNK
     Route: 064
  4. SUBOXONE [Suspect]
     Active Substance: BUPRENORPHINE HYDROCHLORIDE\NALOXONE HYDROCHLORIDE
     Indication: PRODUCT USED FOR UNKNOWN INDICATION
     Dosage: UNK
     Route: 064
  5. HYDROCODONE BITARTRATE/ACETAMINOPHEN [Suspect]
     Active Substance: ACETAMINOPHEN\HYDROCODONE BITARTRATE
     Indication: PRODUCT USED FOR UNKNOWN INDICATION
     Dosage: UNK
     Route: 064

REACTIONS (23)
  - Cold sweat [Unknown]
  - Tremor neonatal [Unknown]
  - Agitation neonatal [Unknown]
  - Pyrexia [Unknown]
  - Rash macular [Unknown]
  - Sneezing [Unknown]
  - Neonatal seizure [Unknown]
  - Drug dependence [Unknown]
  - Influenza like illness [Unknown]
  - Muscle tightness [Unknown]
  - Sleep disorder [Unknown]
  - Drug withdrawal syndrome neonatal [Unknown]
  - Vomiting [Unknown]
  - Nausea [Unknown]
  - Poor sucking reflex [Unknown]
  - Poor weight gain neonatal [Unknown]
  - Respiratory rate increased [Unknown]
  - Diarrhoea [Unknown]
  - Decreased appetite [Unknown]
  - Muscle twitching [Unknown]
  - Hyperaesthesia [Unknown]
  - Chills [Unknown]
  - High-pitched crying [Unknown]
